FAERS Safety Report 26156461 (Version 1)
Quarter: 2025Q4

REPORT INFORMATION
  Report Type: Spontaneous
  Country: US (occurrence: None)
  Receive Date: 20251215
  Receipt Date: 20251215
  Transmission Date: 20260117
  Serious: No
  Sender: UCB
  Company Number: US-UCBSA-2025056166

PATIENT
  Weight: 157.8 kg

DRUGS (2)
  1. BIMZELX [Suspect]
     Active Substance: BIMEKIZUMAB-BKZX
     Indication: Hidradenitis
     Dosage: 320 MILLIGRAM, EV 4 WEEKS
  2. BIMZELX [Suspect]
     Active Substance: BIMEKIZUMAB-BKZX
     Indication: Spinal osteoarthritis
     Dosage: 320 MILLIGRAM, EV 4 WEEKS

REACTIONS (5)
  - Spinal osteoarthritis [Unknown]
  - Hidradenitis [Unknown]
  - Condition aggravated [Unknown]
  - Product dose omission issue [Unknown]
  - Product use in unapproved indication [Unknown]
